FAERS Safety Report 24539556 (Version 1)
Quarter: 2024Q4

REPORT INFORMATION
  Report Type: Spontaneous
  Country: US (occurrence: US)
  Receive Date: 20241023
  Receipt Date: 20241023
  Transmission Date: 20250114
  Serious: Yes (Other)
  Sender: ACCORD
  Company Number: US-MLMSERVICE-20241009-PI222846-00271-1

PATIENT
  Age: 81 Year
  Sex: Male

DRUGS (6)
  1. HYDROXYCHLOROQUINE [Suspect]
     Active Substance: HYDROXYCHLOROQUINE
     Indication: Rheumatoid arthritis
  2. METHOTREXATE [Suspect]
     Active Substance: METHOTREXATE
     Indication: Rheumatoid arthritis
  3. PREDNISONE [Suspect]
     Active Substance: PREDNISONE
     Indication: Rheumatoid arthritis
  4. HYDROXYCHLOROQUINE [Suspect]
     Active Substance: HYDROXYCHLOROQUINE
     Indication: Vasculitis
  5. METHOTREXATE [Suspect]
     Active Substance: METHOTREXATE
     Indication: Vasculitis
  6. PREDNISONE [Suspect]
     Active Substance: PREDNISONE
     Indication: Vasculitis

REACTIONS (4)
  - Abscess limb [Recovering/Resolving]
  - Nocardiosis [Recovering/Resolving]
  - Brain abscess [Recovering/Resolving]
  - Vasogenic cerebral oedema [Recovering/Resolving]
